FAERS Safety Report 4942898-4 (Version None)
Quarter: 2006Q1

REPORT INFORMATION
  Report Type: 
  Country: None (occurrence: None)
  Receive Date: 20060309
  Receipt Date: 20060301
  Transmission Date: 20060701
  Serious: No
  Sender: FDA-Public Use
  Company Number: APP200600068

PATIENT
  Age: 35 Year
  Sex: Female
  Weight: 62 kg

DRUGS (3)
  1. PROFASI HP (CHORIONIC GONADOTROPIN) [Suspect]
     Indication: INFERTILITY
     Dosage: 3 IN 1 CYCLE, INJECTION
     Dates: start: 20000101, end: 20020101
  2. PROGESTERONE [Suspect]
     Indication: INFERTILITY
     Dosage: ORAL
     Route: 048
     Dates: start: 20000201, end: 20030101
  3. FOLLITROPIN BETA (FOLLITROPIN BETA) [Suspect]
     Indication: INFERTILITY
     Dates: start: 20000101, end: 20020101

REACTIONS (3)
  - CHROMATOPSIA [None]
  - EYE PAIN [None]
  - RETINITIS PIGMENTOSA [None]
